FAERS Safety Report 4838151-X (Version None)
Quarter: 2005Q4

REPORT INFORMATION
  Report Type: 
  Country: None (occurrence: None)
  Receive Date: 20051128
  Receipt Date: 20051010
  Transmission Date: 20060501
  Serious: Yes (Hospitalization)
  Sender: FDA-Public Use
  Company Number: 200513307FR

PATIENT
  Age: 88 Year
  Sex: Female

DRUGS (3)
  1. FLAGYL [Suspect]
     Route: 048
     Dates: start: 20050810, end: 20050826
  2. COUMADIN [Suspect]
     Route: 048
     Dates: end: 20050811
  3. ROCEPHIN [Suspect]
     Route: 042
     Dates: start: 20050810, end: 20050826

REACTIONS (2)
  - INTERNATIONAL NORMALISED RATIO INCREASED [None]
  - PROTHROMBIN LEVEL DECREASED [None]
